FAERS Safety Report 7390005-3 (Version None)
Quarter: 2011Q1

REPORT INFORMATION
  Report Type: 
  Country: None (occurrence: None)
  Receive Date: 20110324
  Receipt Date: 20110315
  Transmission Date: 20110831
  Serious: Yes (Hospitalization)
  Sender: FDA-Public Use
  Company Number: 2010SP039400

PATIENT
  Age: 53 Year
  Sex: Female
  Weight: 61 kg

DRUGS (25)
  1. TEMOZOLOMIDE [Suspect]
     Indication: OVARIAN CANCER
     Dosage: 245 MG; QD; PO
     Route: 048
     Dates: start: 20100624, end: 20100628
  2. GABAPENTIN [Concomitant]
  3. DIPHENHYDRAMINE [Concomitant]
  4. MORPHINE SULFATE [Concomitant]
  5. OXYCODONE [Concomitant]
  6. PROCHLORPERAZINE EDISYLATE [Concomitant]
  7. FLEBOBAG RING LACT [Concomitant]
  8. TRAZODONE [Concomitant]
  9. BACTRIM [Concomitant]
  10. CYCLOBENZAPRINE HYDROCHLORIDE [Concomitant]
  11. DOCUSATE [Concomitant]
  12. IBUPROFEN [Concomitant]
  13. ABT-888 [Suspect]
     Indication: OVARIAN CANCER
     Dosage: 40 MG; QD; PO
     Route: 048
     Dates: start: 20100624, end: 20100629
  14. LORAZEPAM [Concomitant]
  15. RANITIDINE [Concomitant]
  16. CIPROFLOXACIN [Concomitant]
  17. VICODIN [Concomitant]
  18. PROMETHAZINE [Concomitant]
  19. FONDAPARINUX SODIUM [Concomitant]
  20. MULTI-VITAMIN [Concomitant]
  21. ONDANSETRON [Concomitant]
  22. TYLOX [Concomitant]
  23. CIPROFLOXACIN LACTATE [Concomitant]
  24. CIPROFLOXACIN LACTATE [Concomitant]
  25. SODIUM CHLORIDE 0.9% [Concomitant]

REACTIONS (8)
  - DIARRHOEA [None]
  - LIVER FUNCTION TEST ABNORMAL [None]
  - PETECHIAE [None]
  - DIZZINESS [None]
  - THROMBOCYTOPENIA [None]
  - NEUTROPENIA [None]
  - INFECTION [None]
  - DEHYDRATION [None]
